FAERS Safety Report 9601196 (Version 4)
Quarter: 2013Q4

REPORT INFORMATION
  Report Type: Report from Study
  Country: CA (occurrence: CA)
  Receive Date: 20131005
  Receipt Date: 20131206
  Transmission Date: 20140711
  Serious: Yes (Other)
  Sender: FDA-Public Use
  Company Number: CA-ROCHE-1215200

PATIENT
  Age: 75 Year
  Sex: Female
  Weight: 68 kg

DRUGS (10)
  1. RITUXAN [Suspect]
     Indication: RHEUMATOID ARTHRITIS
     Route: 042
     Dates: start: 20110822
  2. RITUXAN [Suspect]
     Route: 042
     Dates: start: 20130618
  3. DIPHENHYDRAMINE HCL [Concomitant]
     Indication: PREMEDICATION
     Route: 048
     Dates: start: 20110822
  4. ACETAMINOPHEN [Concomitant]
     Indication: PREMEDICATION
     Route: 048
     Dates: start: 20110822
  5. METHOTREXATE [Concomitant]
     Route: 048
  6. PREDNISONE [Concomitant]
  7. FENTANYL [Concomitant]
     Route: 065
  8. IRBESARTAN [Concomitant]
     Indication: BLOOD PRESSURE
  9. BENADRYL (CANADA) [Concomitant]
     Route: 048
     Dates: start: 20110822
  10. SOLU-MEDROL [Concomitant]
     Route: 042
     Dates: start: 20110908

REACTIONS (3)
  - Pneumonia [Unknown]
  - Blood pressure increased [Unknown]
  - Skin cancer [Not Recovered/Not Resolved]
